FAERS Safety Report 21425705 (Version 2)
Quarter: 2023Q1

REPORT INFORMATION
  Report Type: Report from Study
  Country: US (occurrence: US)
  Receive Date: 20221008
  Receipt Date: 20230307
  Transmission Date: 20230418
  Serious: No
  Sender: FDA-Public Use
  Company Number: US-ABBVIE-4136131

PATIENT
  Sex: Male

DRUGS (3)
  1. SKYRIZI [Suspect]
     Active Substance: RISANKIZUMAB-RZAA
     Indication: Psoriasis
     Route: 058
     Dates: start: 20220912
  2. SKYRIZI [Suspect]
     Active Substance: RISANKIZUMAB-RZAA
     Route: 058
     Dates: start: 20221205
  3. SKYRIZI [Suspect]
     Active Substance: RISANKIZUMAB-RZAA
     Route: 058
     Dates: start: 20220815

REACTIONS (8)
  - General physical health deterioration [Unknown]
  - Fatigue [Not Recovered/Not Resolved]
  - Psoriasis [Unknown]
  - Upper respiratory tract infection [Unknown]
  - Skin disorder [Unknown]
  - Loss of personal independence in daily activities [Unknown]
  - Tooth extraction [Unknown]
  - Gingivitis [Unknown]
